FAERS Safety Report 8384733-0 (Version None)
Quarter: 2012Q2

REPORT INFORMATION
  Report Type: 
  Country: None (occurrence: None)
  Receive Date: 20120524
  Receipt Date: 20120515
  Transmission Date: 20120825
  Serious: Yes (Death, Other)
  Sender: FDA-Public Use
  Company Number: TW-PFIZER INC-2012119569

PATIENT
  Age: 57 Year
  Sex: Male

DRUGS (1)
  1. TEMSIROLIMUS [Suspect]
     Indication: METASTATIC RENAL CELL CARCINOMA

REACTIONS (6)
  - HYPERLIPIDAEMIA [None]
  - INTERSTITIAL LUNG DISEASE [None]
  - DYSPNOEA [None]
  - RENAL IMPAIRMENT [None]
  - DEATH [None]
  - ANAEMIA [None]
